FAERS Safety Report 6441490-2 (Version None)
Quarter: 2009Q4

REPORT INFORMATION
  Report Type: 
  Country: None (occurrence: None)
  Receive Date: 20091116
  Receipt Date: 20091110
  Transmission Date: 20100525
  Serious: Yes (Other)
  Sender: FDA-Public Use
  Company Number: B0569723A

PATIENT
  Sex: Male

DRUGS (5)
  1. PAXIL [Suspect]
     Indication: DRUG USE FOR UNKNOWN INDICATION
     Route: 048
  2. GRANDAXIN [Concomitant]
     Indication: ANXIETY
     Route: 048
     Dates: start: 20070421, end: 20070922
  3. LEXOTAN [Concomitant]
     Indication: ANXIETY
     Dosage: 2MG PER DAY
     Route: 048
     Dates: start: 20070421, end: 20070929
  4. LENDORMIN [Concomitant]
     Indication: INSOMNIA
     Route: 048
     Dates: start: 20070421, end: 20080405
  5. ROHYPNOL [Concomitant]
     Indication: INSOMNIA
     Dosage: 2MG PER DAY
     Route: 048
     Dates: start: 20070512, end: 20080115

REACTIONS (4)
  - DEPRESSION [None]
  - ILL-DEFINED DISORDER [None]
  - MANIA [None]
  - MOOD ALTERED [None]
